FAERS Safety Report 5073736-X (Version None)
Quarter: 2006Q3

REPORT INFORMATION
  Report Type: 
  Country: None (occurrence: None)
  Receive Date: 20060808
  Receipt Date: 20050428
  Transmission Date: 20061208
  Serious: No
  Sender: FDA-Public Use
  Company Number: US-AMGEN-US129998

PATIENT
  Sex: Male

DRUGS (4)
  1. ARANESP [Suspect]
     Indication: ANAEMIA
     Dates: start: 20050101
  2. PROCRIT [Suspect]
     Indication: ANAEMIA
  3. IRON [Concomitant]
     Route: 042
  4. IRON [Concomitant]
     Route: 048

REACTIONS (1)
  - DRUG INEFFECTIVE [None]
